FAERS Safety Report 11828813 (Version 1)
Quarter: 2015Q4

REPORT INFORMATION
  Report Type: Spontaneous
  Country: BR (occurrence: BR)
  Receive Date: 20151211
  Receipt Date: 20151211
  Transmission Date: 20160305
  Serious: Yes (Other)
  Sender: FDA-Public Use
  Company Number: BR-SHIRE-BR201515842

PATIENT
  Age: 10 Year
  Sex: Female
  Weight: 40 kg

DRUGS (1)
  1. VENVANSE [Suspect]
     Active Substance: LISDEXAMFETAMINE DIMESYLATE
     Indication: ATTENTION DEFICIT/HYPERACTIVITY DISORDER
     Dosage: 30 MG, 1X/DAY:QD (IN THE MORNING)
     Route: 048
     Dates: start: 20130813

REACTIONS (8)
  - Inappropriate schedule of drug administration [Not Recovered/Not Resolved]
  - Decreased appetite [Unknown]
  - Haemorrhage [Recovered/Resolved]
  - Sleep disorder [Unknown]
  - Drug dose omission [Not Recovered/Not Resolved]
  - Increased appetite [Unknown]
  - Anxiety [Unknown]
  - Constipation [Not Recovered/Not Resolved]

NARRATIVE: CASE EVENT DATE: 20130813
